FAERS Safety Report 4799744-1 (Version None)
Quarter: 2005Q4

REPORT INFORMATION
  Report Type: 
  Country: None (occurrence: None)
  Receive Date: 20051011
  Receipt Date: 20051011
  Transmission Date: 20060501
  Serious: Yes (Hospitalization)
  Sender: FDA-Public Use
  Company Number: None

PATIENT
  Sex: Female
  Weight: 84.8226 kg

DRUGS (1)
  1. TETRACYCLINE [Suspect]
     Dosage: 500 MG PO [PRIOR TO ADMISSION] X 5 DAYS
     Route: 048

REACTIONS (2)
  - RASH GENERALISED [None]
  - RASH PRURITIC [None]
